FAERS Safety Report 17468889 (Version 2)
Quarter: 2020Q1

REPORT INFORMATION
  Report Type: Spontaneous
  Country: FR (occurrence: FR)
  Receive Date: 20200227
  Receipt Date: 20200309
  Transmission Date: 20200409
  Serious: Yes (Hospitalization)
  Sender: FDA-Public Use
  Company Number: FR-009507513-2002FRA009771

PATIENT
  Age: 66 Year
  Sex: Male
  Weight: 97 kg

DRUGS (3)
  1. GLUCOPHAGE [Suspect]
     Active Substance: METFORMIN HYDROCHLORIDE
     Indication: TYPE 2 DIABETES MELLITUS
     Dosage: 1000 MG, TID
     Dates: start: 201910, end: 2019
  2. JANUVIA [Suspect]
     Active Substance: SITAGLIPTIN PHOSPHATE
     Indication: TYPE 2 DIABETES MELLITUS
     Dosage: 100 MILLIGRAM, QD
     Dates: start: 201910, end: 2019
  3. BIO GLIBENCLAMIDE [Suspect]
     Active Substance: GLYBURIDE
     Indication: TYPE 2 DIABETES MELLITUS
     Dosage: 2.5 MILLIGRAM, BID
     Dates: start: 201910, end: 2019

REACTIONS (7)
  - Cough [Unknown]
  - General physical health deterioration [Unknown]
  - Lung disorder [Unknown]
  - Cardiac failure [Unknown]
  - Dyspnoea exertional [Unknown]
  - Laryngeal discomfort [Unknown]
  - Weight decreased [Unknown]

NARRATIVE: CASE EVENT DATE: 2019
